FAERS Safety Report 10206290 (Version 1)
Quarter: 2014Q2

REPORT INFORMATION
  Report Type: Spontaneous
  Country: AU (occurrence: AU)
  Receive Date: 20140530
  Receipt Date: 20140530
  Transmission Date: 20141212
  Serious: Yes (Death)
  Sender: FDA-Public Use
  Company Number: AU-ROCHE-1410538

PATIENT
  Age: 86 Year
  Sex: Female

DRUGS (2)
  1. RANIBIZUMAB [Suspect]
     Indication: AGE-RELATED MACULAR DEGENERATION
     Route: 050
     Dates: start: 20110809, end: 20140311
  2. MACU-VISION (AUSTRALIA) [Concomitant]
     Indication: AGE-RELATED MACULAR DEGENERATION
     Route: 048
     Dates: start: 20110809

REACTIONS (1)
  - Death [Fatal]
